FAERS Safety Report 10447304 (Version 2)
Quarter: 2014Q3

REPORT INFORMATION
  Report Type: Spontaneous
  Country: RO (occurrence: RO)
  Receive Date: 20140911
  Receipt Date: 20140911
  Transmission Date: 20150326
  Serious: Yes (Hospitalization)
  Sender: FDA-Public Use
  Company Number: PHHY2014RO094939

PATIENT
  Age: 63 Year
  Sex: Male

DRUGS (4)
  1. EXJADE [Suspect]
     Active Substance: DEFERASIROX
     Indication: MYELODYSPLASTIC SYNDROME
     Dosage: 250 MG, 06 DF PER DAY
     Route: 048
     Dates: start: 20140705, end: 20140714
  2. EXJADE [Suspect]
     Active Substance: DEFERASIROX
     Dosage: UNK UKN, UNK
     Dates: start: 20140807
  3. EXJADE [Suspect]
     Active Substance: DEFERASIROX
     Dosage: 500 MG, 6 DF PER DAY
     Dates: start: 20140721
  4. ARANESP [Concomitant]
     Active Substance: DARBEPOETIN ALFA
     Dosage: UNK UKN, UNK

REACTIONS (9)
  - Oral herpes [Unknown]
  - Dysphagia [Unknown]
  - Lip oedema [Unknown]
  - Aphthous stomatitis [Unknown]
  - Pneumonia [Unknown]
  - Rash vesicular [Unknown]
  - Rash [Recovering/Resolving]
  - Interstitial lung disease [Unknown]
  - Tongue oedema [Unknown]

NARRATIVE: CASE EVENT DATE: 20140714
